FAERS Safety Report 5602397-3 (Version None)
Quarter: 2008Q1

REPORT INFORMATION
  Report Type: 
  Country: None (occurrence: None)
  Receive Date: 20080118
  Receipt Date: 20080104
  Transmission Date: 20080703
  Serious: Yes (Death)
  Sender: FDA-Public Use
  Company Number: 2008001117

PATIENT
  Age: 56 Year
  Sex: Female

DRUGS (9)
  1. DIPHENHYDRAMINE HCL [Suspect]
     Dosage: UNSPECIFIED, ORAL
     Route: 048
  2. OTHER ANALGESICS AND ANTIPYRETICS (OTHER ANALGESICS AND ANTIPYRETICS) [Suspect]
     Dosage: UNSPECIFIED, ORAL
     Route: 048
  3. FENTANYL [Suspect]
     Dosage: UNSPECIFIED, ORAL
     Route: 048
  4. HYDROCODONE BITARTRATE + ACETAMINOPHEN [Suspect]
     Dosage: UNSPECIFIED, ORAL
     Route: 048
  5. OXYCODONE HCL [Suspect]
     Dosage: UNSPECIFIED, ORAL
     Route: 048
  6. CARISOPRODOL [Suspect]
     Dosage: UNSPECIFIED, ORAL
     Route: 048
  7. CITALOPRAM HYDROBROMIDE [Suspect]
     Dosage: UNSPECIFIED, ORAL
     Route: 048
  8. BUPROPION HCL [Suspect]
     Dosage: UNSPECIFIED, ORAL
     Route: 048
  9. TRAZODONE HCL [Suspect]
     Dosage: UNSPECIFIED, ORAL
     Route: 048

REACTIONS (1)
  - DRUG TOXICITY [None]
